FAERS Safety Report 8577486-4 (Version None)
Quarter: 2012Q3

REPORT INFORMATION
  Report Type: 
  Country: None (occurrence: None)
  Receive Date: 20120807
  Receipt Date: 20120801
  Transmission Date: 20120928
  Serious: Yes (Other)
  Sender: FDA-Public Use
  Company Number: FI-PFIZER INC-2012168795

PATIENT
  Age: 61 Year
  Sex: Female

DRUGS (9)
  1. PREDNISOLONE [Concomitant]
     Dosage: 5 MG, 1X/DAY
  2. SPIRIVA [Concomitant]
     Dosage: UNK
  3. GASTERIX [Concomitant]
     Dosage: UNK
  4. PANACOD [Concomitant]
     Dosage: UNK
  5. NUELIN  DEPOT [Concomitant]
     Dosage: UNK
  6. SULFASALAZINE [Suspect]
     Indication: RHEUMATOID ARTHRITIS
     Dosage: UNK
     Dates: start: 20120414, end: 20120601
  7. FLUTICASONE PROPIONATE/SALMETEROL [Concomitant]
     Dosage: UNK
  8. CALCIUM CARBONATE [Concomitant]
     Dosage: UNK
  9. FORTEO [Concomitant]
     Dosage: UNK

REACTIONS (5)
  - SKIN EXFOLIATION [None]
  - MOUTH HAEMORRHAGE [None]
  - MELANOCYTIC NAEVUS [None]
  - SKIN HAEMORRHAGE [None]
  - DRY SKIN [None]
